FAERS Safety Report 23075641 (Version 3)
Quarter: 2023Q4

REPORT INFORMATION
  Report Type: Spontaneous
  Country: US (occurrence: US)
  Receive Date: 20231017
  Receipt Date: 20231109
  Transmission Date: 20240110
  Serious: Yes (Hospitalization, Other)
  Sender: FDA-Public Use
  Company Number: US-BRISTOL-MYERS SQUIBB COMPANY-2023-146020

PATIENT
  Age: 56 Year
  Sex: Female

DRUGS (2)
  1. POMALYST [Suspect]
     Active Substance: POMALIDOMIDE
     Indication: Plasma cell myeloma
     Dosage: FREQUENCY:18
     Dates: start: 202308
  2. POMALYST [Suspect]
     Active Substance: POMALIDOMIDE
     Dosage: FREQUENCY: TAKE 1 CAPSULE BY MOUTH EVERY OTHER DAY FOR 1ST WEEK AND THEN ONCE DAILY FOR NEXT 2WEEKS
     Route: 048
     Dates: start: 202309

REACTIONS (4)
  - Hyperkalaemia [Unknown]
  - Chest pain [Unknown]
  - Dry mouth [Unknown]
  - Off label use [Unknown]
